FAERS Safety Report 13020371 (Version 1)
Quarter: 2016Q4

REPORT INFORMATION
  Report Type: Other
  Country: TR (occurrence: TR)
  Receive Date: 20161212
  Receipt Date: 20161212
  Transmission Date: 20170207
  Serious: Yes (Hospitalization)
  Sender: FDA-Public Use
  Company Number: TR-ENDO PHARMACEUTICALS INC-2016-007112

PATIENT
  Age: 60 Year
  Sex: Male

DRUGS (1)
  1. PREDNISONE TABLETS [Suspect]
     Active Substance: PREDNISONE
     Indication: IMMUNE THROMBOCYTOPENIC PURPURA
     Dosage: 1 MG/KG PER DAY
     Route: 065

REACTIONS (1)
  - Posterior reversible encephalopathy syndrome [Unknown]
